FAERS Safety Report 5045579-4 (Version None)
Quarter: 2006Q3

REPORT INFORMATION
  Report Type: 
  Country: None (occurrence: None)
  Receive Date: 20060707
  Receipt Date: 20060614
  Transmission Date: 20061208
  Serious: Yes (Hospitalization)
  Sender: FDA-Public Use
  Company Number: JP-ROCHE-451940

PATIENT
  Age: 74 Year
  Sex: Male

DRUGS (4)
  1. PANALDINE [Suspect]
     Indication: THROMBOSIS PROPHYLAXIS
     Route: 048
     Dates: start: 20060511, end: 20060522
  2. GASTER [Suspect]
     Indication: STOMACH DISCOMFORT
     Route: 048
     Dates: start: 20060512, end: 20060524
  3. NITOROL [Suspect]
     Indication: ANGINA PECTORIS
     Route: 048
     Dates: start: 20060510, end: 20060525
  4. BUFFERIN [Concomitant]
     Indication: ANGINA PECTORIS
     Route: 048
     Dates: start: 20060410

REACTIONS (9)
  - ALANINE AMINOTRANSFERASE INCREASED [None]
  - ASPARTATE AMINOTRANSFERASE INCREASED [None]
  - BLOOD BILIRUBIN ABNORMAL [None]
  - BLOOD LACTATE DEHYDROGENASE INCREASED [None]
  - DISCOMFORT [None]
  - LIVER DISORDER [None]
  - MALAISE [None]
  - NAUSEA [None]
  - VOMITING [None]
